FAERS Safety Report 6589402-5 (Version None)
Quarter: 2010Q1

REPORT INFORMATION
  Report Type: 
  Country: None (occurrence: None)
  Receive Date: 20100205
  Receipt Date: 20100128
  Transmission Date: 20100710
  Serious: Yes (Other)
  Sender: FDA-Public Use
  Company Number: 2010AL000078

PATIENT
  Age: 52 Year
  Sex: Female

DRUGS (2)
  1. DIAZEPAM TAB [Suspect]
     Indication: SEDATION
     Dosage: 10 MG; IV
     Route: 042
     Dates: start: 20091211, end: 20091211
  2. DEMEROL [Concomitant]

REACTIONS (4)
  - AGITATION [None]
  - OXYGEN SATURATION DECREASED [None]
  - PRODUCT QUALITY ISSUE [None]
  - SEDATION [None]
